FAERS Safety Report 25975447 (Version 1)
Quarter: 2025Q4

REPORT INFORMATION
  Report Type: Spontaneous
  Country: US (occurrence: US)
  Receive Date: 20251029
  Receipt Date: 20251029
  Transmission Date: 20260118
  Serious: No
  Sender: ABBVIE
  Company Number: US-ABBVIE-6516423

PATIENT
  Age: 43 Year

DRUGS (2)
  1. BOTOX COSMETIC [Suspect]
     Active Substance: ONABOTULINUMTOXINA
     Indication: Skin cosmetic procedure
     Dosage: TIME INTERVAL: AS NECESSARY: DOSE- 34 DOSAGE FORM?FREQUENCY- EVERY ONE DAY?FORM STRENGTH- 34 UNITS
     Route: 030
     Dates: start: 20250825, end: 20250825
  2. BOTOX COSMETIC [Suspect]
     Active Substance: ONABOTULINUMTOXINA
     Indication: Skin cosmetic procedure
     Dosage: TIME INTERVAL: AS NECESSARY: DOSE- 14 UNITS?FREQUENCY- EVERY ONE DAY?FORM STRENGTH- 14 UNITS
     Route: 030
     Dates: start: 20250908, end: 20250908

REACTIONS (1)
  - Influenza like illness [Recovered/Resolved]

NARRATIVE: CASE EVENT DATE: 20250901
